FAERS Safety Report 7089083-0 (Version None)
Quarter: 2010Q4

REPORT INFORMATION
  Report Type: 
  Country: None (occurrence: None)
  Receive Date: 20101108
  Receipt Date: 20101028
  Transmission Date: 20110411
  Serious: Yes (Other)
  Sender: FDA-Public Use
  Company Number: B0683107A

PATIENT
  Sex: Female

DRUGS (1)
  1. ALTARGO [Suspect]
     Indication: THERMAL BURN
     Dates: start: 20101025, end: 20101025

REACTIONS (1)
  - PAIN [None]
